FAERS Safety Report 11119631 (Version 1)
Quarter: 2015Q2

REPORT INFORMATION
  Report Type: Spontaneous
  Country: US (occurrence: None)
  Receive Date: 20150515
  Receipt Date: 20150515
  Transmission Date: 20150821
  Serious: No
  Sender: FDA-Public Use
  Company Number: None

PATIENT
  Age: 40 Year
  Sex: Female
  Weight: 104.33 kg

DRUGS (8)
  1. IBUPROFEN. [Concomitant]
     Active Substance: IBUPROFEN
  2. TYLENOL [Concomitant]
     Active Substance: ACETAMINOPHEN
  3. FLEXERIL [Concomitant]
     Active Substance: CYCLOBENZAPRINE HYDROCHLORIDE
  4. CLINDAMYCIN [Suspect]
     Active Substance: CLINDAMYCIN\CLINDAMYCIN PHOSPHATE
     Indication: TOOTH ABSCESS
     Dosage: 1 PILL FOUR TIMES DAILY TAKEN BY MOUTH
     Route: 048
     Dates: start: 20150512, end: 20150513
  5. SEASONIQUE [Concomitant]
     Active Substance: ETHINYL ESTRADIOL\LEVONORGESTREL
  6. CLINDAMYCIN [Suspect]
     Active Substance: CLINDAMYCIN\CLINDAMYCIN PHOSPHATE
     Indication: DRUG HYPERSENSITIVITY
     Dosage: 1 PILL FOUR TIMES DAILY TAKEN BY MOUTH
     Route: 048
     Dates: start: 20150512, end: 20150513
  7. LEVOTHYROXINE [Concomitant]
     Active Substance: LEVOTHYROXINE
  8. CYMBALTA [Concomitant]
     Active Substance: DULOXETINE HYDROCHLORIDE

REACTIONS (7)
  - Oesophageal pain [None]
  - Chest discomfort [None]
  - Chest pain [None]
  - Nausea [None]
  - Odynophagia [None]
  - Oesophageal discomfort [None]
  - Feeding disorder [None]

NARRATIVE: CASE EVENT DATE: 20150514
